FAERS Safety Report 21789687 (Version 2)
Quarter: 2024Q3

REPORT INFORMATION
  Report Type: Report from Study
  Country: US (occurrence: US)
  Receive Date: 20221228
  Receipt Date: 20240808
  Transmission Date: 20241017
  Serious: No
  Sender: ABBVIE
  Company Number: US-ABBVIE-22K-163-4408878-00

PATIENT
  Sex: Female

DRUGS (1)
  1. IMBRUVICA [Suspect]
     Active Substance: IBRUTINIB
     Indication: Chronic lymphocytic leukaemia
     Route: 048
     Dates: start: 201805

REACTIONS (4)
  - Dementia Alzheimer^s type [Unknown]
  - Hernia [Unknown]
  - Pain in extremity [Unknown]
  - Vascular dementia [Unknown]

NARRATIVE: CASE EVENT DATE: 20200101
